FAERS Safety Report 4376471-6 (Version None)
Quarter: 2004Q2

REPORT INFORMATION
  Report Type: 
  Country: None (occurrence: None)
  Receive Date: 20040608
  Receipt Date: 20040428
  Transmission Date: 20050107
  Serious: Yes (Life-Threatening, Hospitalization, Disabling)
  Sender: FDA-Public Use
  Company Number: 0104-1655

PATIENT
  Age: 90 Year
  Sex: Male
  Weight: 74.8435 kg

DRUGS (5)
  1. ADVICOR [Suspect]
     Indication: HIGH DENSITY LIPOPROTEIN DECREASED
     Dosage: 1 TABLET (S) QD PO
     Route: 048
     Dates: start: 20040201, end: 20040215
  2. VIOXX [Suspect]
     Route: 048
     Dates: start: 20040214, end: 20040214
  3. TOPROL-XL [Concomitant]
  4. ALTACE [Concomitant]
  5. COUMADIN [Concomitant]

REACTIONS (4)
  - ACQUIRED DIAPHRAGMATIC EVENTRATION [None]
  - HEPATIC CONGESTION [None]
  - OEDEMA [None]
  - RIGHT VENTRICULAR FAILURE [None]
